FAERS Safety Report 24201925 (Version 3)
Quarter: 2024Q4

REPORT INFORMATION
  Report Type: Report from Study
  Country: US (occurrence: US)
  Receive Date: 20240812
  Receipt Date: 20241007
  Transmission Date: 20250115
  Serious: Yes (Hospitalization)
  Sender: BAUSCH AND LOMB
  Company Number: US-BAUSCH-BL-2024-012020

PATIENT
  Age: 21 Year
  Sex: Female

DRUGS (1)
  1. XIFAXAN [Suspect]
     Active Substance: RIFAXIMIN
     Indication: Hepatic encephalopathy
     Route: 048

REACTIONS (5)
  - Gastrointestinal haemorrhage [Unknown]
  - Acute kidney injury [Recovering/Resolving]
  - Post procedural complication [Unknown]
  - Stenosis [Unknown]
  - Anastomotic ulcer [Unknown]

NARRATIVE: CASE EVENT DATE: 20240630
